FAERS Safety Report 22388239 (Version 1)
Quarter: 2023Q2

REPORT INFORMATION
  Report Type: Spontaneous
  Country: JP (occurrence: JP)
  Receive Date: 20230531
  Receipt Date: 20230531
  Transmission Date: 20230721
  Serious: Yes (Life-Threatening, Hospitalization, Other)
  Sender: FDA-Public Use
  Company Number: JP-CHUGAI-2023012528

PATIENT
  Age: 66 Year
  Sex: Female
  Weight: 39.6 kg

DRUGS (10)
  1. AVASTIN [Suspect]
     Active Substance: BEVACIZUMAB
     Indication: Ovarian cancer
     Dosage: 750 MILLIGRAM, SINGLE
     Route: 041
     Dates: start: 20220516, end: 20220516
  2. AVASTIN [Suspect]
     Active Substance: BEVACIZUMAB
     Dosage: 600 MILLIGRAM, ONCE/3WEEKS
     Route: 041
     Dates: start: 20220822, end: 20221128
  3. AVASTIN [Suspect]
     Active Substance: BEVACIZUMAB
     Dosage: 600 MILLIGRAM, SINGLE MOST RECENT DOSE 19/DEC/2022
     Route: 041
     Dates: start: 20221219
  4. CARBOPLATIN [Suspect]
     Active Substance: CARBOPLATIN
     Indication: Ovarian cancer
     Dosage: UNK
     Route: 041
     Dates: start: 20220509, end: 20221128
  5. PACLITAXEL [Concomitant]
     Active Substance: PACLITAXEL
     Indication: Ovarian cancer
     Dosage: UNK
     Route: 041
     Dates: start: 20220509, end: 20221128
  6. LEVOFLOXACIN HEMIHYDRATE [Concomitant]
     Active Substance: LEVOFLOXACIN
     Dosage: UNK
     Route: 065
     Dates: start: 20220905
  7. LEVOFLOXACIN HEMIHYDRATE [Concomitant]
     Active Substance: LEVOFLOXACIN
     Dosage: UNK
     Route: 065
     Dates: start: 20220912
  8. LEVOFLOXACIN HEMIHYDRATE [Concomitant]
     Active Substance: LEVOFLOXACIN
     Dosage: UNK
     Route: 065
     Dates: start: 20220926
  9. LEVOFLOXACIN HEMIHYDRATE [Concomitant]
     Active Substance: LEVOFLOXACIN
     Dosage: UNK
     Route: 065
     Dates: start: 20221017
  10. LEVOFLOXACIN HEMIHYDRATE [Concomitant]
     Active Substance: LEVOFLOXACIN
     Dosage: UNK
     Route: 065
     Dates: start: 20221219, end: 20221220

REACTIONS (10)
  - Iliac artery perforation [Recovering/Resolving]
  - Large intestine perforation [Recovering/Resolving]
  - Vascular graft infection [Recovering/Resolving]
  - Sepsis [Recovering/Resolving]
  - Chylothorax [Recovering/Resolving]
  - Haemoglobin decreased [Unknown]
  - Platelet count decreased [Unknown]
  - Drug hypersensitivity [Unknown]
  - Pyelonephritis [Unknown]
  - Urinary tract infection [Unknown]

NARRATIVE: CASE EVENT DATE: 20220523
